FAERS Safety Report 10621703 (Version 2)
Quarter: 2014Q4

REPORT INFORMATION
  Report Type: Report from Study
  Country: US (occurrence: US)
  Receive Date: 20141203
  Receipt Date: 20141216
  Transmission Date: 20150529
  Serious: Yes (Hospitalization)
  Sender: FDA-Public Use
  Company Number: PHEH2014US023839

PATIENT
  Age: 66 Year
  Sex: Male

DRUGS (1)
  1. TOBI [Suspect]
     Active Substance: TOBRAMYCIN
     Indication: NEOPLASM MALIGNANT
     Dosage: 300 MG
     Route: 055

REACTIONS (6)
  - Osteomyelitis [Unknown]
  - Sputum discoloured [Unknown]
  - Pyrexia [Unknown]
  - Off label use [Unknown]
  - Tracheal disorder [Unknown]
  - Pseudomonas infection [Unknown]

NARRATIVE: CASE EVENT DATE: 20141128
